FAERS Safety Report 7591203-6 (Version None)
Quarter: 2011Q3

REPORT INFORMATION
  Report Type: 
  Country: None (occurrence: None)
  Receive Date: 20110706
  Receipt Date: 20110627
  Transmission Date: 20111222
  Serious: Yes (Hospitalization)
  Sender: FDA-Public Use
  Company Number: US-BIOGENIDEC-2009BI036964

PATIENT
  Age: 50 Year
  Sex: Female

DRUGS (2)
  1. ZYPREXA [Concomitant]
     Dates: start: 20091001
  2. TYSABRI [Suspect]
     Indication: MULTIPLE SCLEROSIS
     Route: 042
     Dates: start: 20090714

REACTIONS (4)
  - UTERINE LEIOMYOMA [None]
  - PAIN IN EXTREMITY [None]
  - HEPATIC LESION [None]
  - DIVERTICULITIS [None]
